FAERS Safety Report 5374217-6 (Version None)
Quarter: 2007Q2

REPORT INFORMATION
  Report Type: 
  Country: None (occurrence: None)
  Receive Date: 20070627
  Receipt Date: 20060802
  Transmission Date: 20071010
  Serious: Yes (Life-Threatening, Hospitalization)
  Sender: FDA-Public Use
  Company Number: 457850

PATIENT
  Age: 59 Year
  Sex: Female

DRUGS (1)
  1. CAPECITABINE (CAPECITABINE) [Suspect]
     Indication: CERVIX CANCER METASTATIC
     Dosage: 1100 MG/M2 2 PER DAY
     Dates: start: 19990715

REACTIONS (6)
  - FEBRILE NEUTROPENIA [None]
  - MUCOSAL INFLAMMATION [None]
  - PALMAR-PLANTAR ERYTHRODYSAESTHESIA SYNDROME [None]
  - PANCYTOPENIA [None]
  - RENAL FAILURE [None]
  - URINARY TRACT INFECTION [None]
